FAERS Safety Report 8518848-0 (Version None)
Quarter: 2012Q3

REPORT INFORMATION
  Report Type: 
  Country: None (occurrence: None)
  Receive Date: 20120718
  Receipt Date: 20120607
  Transmission Date: 20120928
  Serious: No
  Sender: FDA-Public Use
  Company Number: US-BAYER-2012-067955

PATIENT
  Age: 5 Year
  Sex: Female

DRUGS (1)
  1. DESONATE [Suspect]
     Dosage: UNK
     Dates: start: 20120606

REACTIONS (1)
  - SKIN DISCOLOURATION [None]
